FAERS Safety Report 16711350 (Version 3)
Quarter: 2021Q1

REPORT INFORMATION
  Report Type: Report from Study
  Country: US (occurrence: US)
  Receive Date: 20190816
  Receipt Date: 20210209
  Transmission Date: 20210419
  Serious: Yes (Other)
  Sender: FDA-Public Use
  Company Number: US-SA-2019SA224428

PATIENT
  Age: 64 Year
  Sex: Male

DRUGS (1)
  1. ALEMTUZUMAB [Suspect]
     Active Substance: ALEMTUZUMAB
     Indication: SECONDARY PROGRESSIVE MULTIPLE SCLEROSIS
     Dosage: 12 MG, QD
     Route: 041
     Dates: start: 20190805, end: 20190809

REACTIONS (7)
  - Constipation [Unknown]
  - Decreased immune responsiveness [Not Recovered/Not Resolved]
  - T-lymphocyte count abnormal [Not Recovered/Not Resolved]
  - Ileus paralytic [Unknown]
  - Functional gastrointestinal disorder [Unknown]
  - Pain [Unknown]
  - Unevaluable event [Unknown]

NARRATIVE: CASE EVENT DATE: 20190808
